FAERS Safety Report 5213450-0 (Version None)
Quarter: 2007Q1

REPORT INFORMATION
  Report Type: 
  Country: None (occurrence: None)
  Receive Date: 20070119
  Receipt Date: 20070110
  Transmission Date: 20070707
  Serious: No
  Sender: FDA-Public Use
  Company Number: CA-JNJFOC-20060105380

PATIENT
  Sex: Female

DRUGS (3)
  1. REMICADE [Suspect]
     Route: 042
  2. REMICADE [Suspect]
     Route: 042
  3. REMICADE [Suspect]
     Indication: CROHN'S DISEASE
     Dosage: THIS WAS PATIENT'S 3RD DOSE.
     Route: 042

REACTIONS (4)
  - INFLUENZA LIKE ILLNESS [None]
  - JOINT STIFFNESS [None]
  - PAIN IN JAW [None]
  - SERUM SICKNESS [None]
